FAERS Safety Report 6839235-7 (Version None)
Quarter: 2010Q3

REPORT INFORMATION
  Report Type: 
  Country: None (occurrence: None)
  Receive Date: 20100708
  Receipt Date: 20100622
  Transmission Date: 20110219
  Serious: Yes (Life-Threatening, Hospitalization)
  Sender: FDA-Public Use
  Company Number: 626149

PATIENT
  Age: 28 Year
  Sex: Male

DRUGS (8)
  1. ETOPOSIDE [Suspect]
     Dosage: 330 MG MILLIGRAM(S), INTRAVENOUS; 20% DOSE REDUCTION
     Route: 042
     Dates: start: 20091229, end: 20091231
  2. CISPLATIN [Suspect]
     Dosage: 99 MG MILLIGRAM(S), INTRAVENOUS
     Route: 042
     Dates: start: 20091229, end: 20091230
  3. NEULASTA [Suspect]
     Dosage: 6 MG MILLIGRAM(S), SUBCUTANEOUS; 30?G MICROGRAM(S) SUBCUTANEOUS
     Route: 058
     Dates: start: 20100106
  4. APREPITANT [Concomitant]
  5. BLEOMYCIN [Concomitant]
  6. DEXAMETHASONE [Concomitant]
  7. METOCLOPRAMIDE [Concomitant]
  8. ONDANSETRON [Concomitant]

REACTIONS (7)
  - BLOOD SODIUM DECREASED [None]
  - DRUG INEFFECTIVE [None]
  - FACIAL PAIN [None]
  - FEBRILE NEUTROPENIA [None]
  - HAEMOGLOBIN DECREASED [None]
  - PLATELET COUNT DECREASED [None]
  - WHITE BLOOD CELL COUNT DECREASED [None]
